FAERS Safety Report 4607077-9 (Version None)
Quarter: 2005Q1

REPORT INFORMATION
  Report Type: 
  Country: None (occurrence: None)
  Receive Date: 20050314
  Receipt Date: 20050307
  Transmission Date: 20050727
  Serious: Yes (Other)
  Sender: FDA-Public Use
  Company Number: FR-BRISTOL-MYERS SQUIBB COMPANY-12895165

PATIENT
  Age: 15 Year
  Sex: Male

DRUGS (6)
  1. CYCLOPHOSPHAMIDE [Suspect]
     Indication: EWING'S SARCOMA
     Dosage: DAYS 1-7
  2. DOXORUBICIN HCL [Suspect]
     Indication: EWING'S SARCOMA
     Dosage: DAY 8
  3. ETOPOSIDE [Suspect]
     Indication: EWING'S SARCOMA
     Dosage: DAYS 1-5
  4. IFOSFAMIDE [Suspect]
     Indication: EWING'S SARCOMA
     Dosage: DAYS 1-5
  5. MELPHALAN [Suspect]
     Indication: EWING'S SARCOMA
     Dosage: DAY 3
  6. BUSULFAN [Suspect]
     Indication: EWING'S SARCOMA
     Dosage: DAYS 6-3

REACTIONS (2)
  - PORTAL VEIN THROMBOSIS [None]
  - VENOOCCLUSIVE LIVER DISEASE [None]
